FAERS Safety Report 13692911 (Version 1)
Quarter: 2017Q2

REPORT INFORMATION
  Report Type: Spontaneous
  Country: US (occurrence: US)
  Receive Date: 20170627
  Receipt Date: 20170627
  Transmission Date: 20170830
  Serious: Yes (Hospitalization, Other)
  Sender: FDA-Public Use
  Company Number: US-ZYDUS-015583

PATIENT
  Age: 60 Year
  Sex: Male

DRUGS (1)
  1. SIMVASTATIN. [Suspect]
     Active Substance: SIMVASTATIN
     Indication: CORONARY ARTERY DISEASE
     Route: 065

REACTIONS (25)
  - Nausea [Unknown]
  - Blood potassium increased [Unknown]
  - Hypercalcaemia [Recovered/Resolved]
  - Muscular weakness [Recovering/Resolving]
  - Myopathy [Unknown]
  - Abdominal pain [Unknown]
  - Blood urea increased [Unknown]
  - Alanine aminotransferase increased [Unknown]
  - Rhabdomyolysis [Unknown]
  - Asthenia [Recovering/Resolving]
  - Vomiting [Unknown]
  - Blood creatinine increased [Unknown]
  - Dysphagia [Unknown]
  - Calcium ionised decreased [Unknown]
  - Acute kidney injury [Unknown]
  - Myositis [Unknown]
  - Aspartate aminotransferase increased [Unknown]
  - Myoglobin urine present [Unknown]
  - Oliguria [Unknown]
  - Blood creatine phosphokinase increased [Unknown]
  - Blood calcium increased [Recovered/Resolved]
  - Blood alkaline phosphatase increased [Unknown]
  - Muscle necrosis [Unknown]
  - Muscle atrophy [Unknown]
  - Blood phosphorus increased [Recovered/Resolved]
